FAERS Safety Report 4405167-7 (Version None)
Quarter: 2004Q3

REPORT INFORMATION
  Report Type: 
  Country: None (occurrence: None)
  Receive Date: 20040723
  Receipt Date: 20040528
  Transmission Date: 20050211
  Serious: No
  Sender: FDA-Public Use
  Company Number: US-BRISTOL-MYERS SQUIBB COMPANY-12611729

PATIENT
  Age: 6 Decade
  Sex: Male

DRUGS (1)
  1. MAXIPIME [Suspect]
     Indication: NEUTROPENIA
     Route: 042
     Dates: start: 20040401

REACTIONS (1)
  - INFUSION SITE PAIN [None]
